FAERS Safety Report 5363943-0 (Version None)
Quarter: 2007Q2

REPORT INFORMATION
  Report Type: 
  Country: None (occurrence: None)
  Receive Date: 20070620
  Receipt Date: 20070608
  Transmission Date: 20071010
  Serious: Yes (Hospitalization)
  Sender: FDA-Public Use
  Company Number: US-ELI_LILLY_AND_COMPANY-US200706001766

PATIENT
  Age: 35 Year
  Sex: Male

DRUGS (2)
  1. PROZAC [Suspect]
     Indication: DEPRESSION
     Dosage: 40 MG, DAILY (1/D)
     Route: 048
     Dates: start: 20050101, end: 20070101
  2. ZYPREXA [Suspect]
     Dosage: UNK, UNK
     Route: 048
     Dates: start: 20070401, end: 20070101

REACTIONS (2)
  - DEPRESSION [None]
  - DRUG INEFFECTIVE [None]
